FAERS Safety Report 10378563 (Version 1)
Quarter: 2014Q3

REPORT INFORMATION
  Report Type: Spontaneous
  Country: US (occurrence: None)
  Receive Date: 20140811
  Receipt Date: 20140811
  Transmission Date: 20150326
  Serious: Yes (Hospitalization, Disabling, Other)
  Sender: FDA-Public Use
  Company Number: None

PATIENT
  Age: 50 Year
  Sex: Female
  Weight: 49.9 kg

DRUGS (2)
  1. METOPROLOL [Suspect]
     Active Substance: METOPROLOL
     Indication: HYPERTENSION
     Dosage: 1 TABLET
     Route: 048
     Dates: start: 20130301, end: 20140731
  2. LISINOPRIL. [Suspect]
     Active Substance: LISINOPRIL
     Indication: HYPERTENSION
     Dosage: 1 PILL
     Route: 048
     Dates: start: 20130301, end: 20140301

REACTIONS (10)
  - Peripheral swelling [None]
  - Urticaria [None]
  - Drug hypersensitivity [None]
  - Malaise [None]
  - Food allergy [None]
  - Swollen tongue [None]
  - Hypoaesthesia [None]
  - Pruritus [None]
  - Eye swelling [None]
  - No therapeutic response [None]

NARRATIVE: CASE EVENT DATE: 20140115
